FAERS Safety Report 7099246-6 (Version None)
Quarter: 2010Q4

REPORT INFORMATION
  Report Type: 
  Country: None (occurrence: None)
  Receive Date: 20101104
  Receipt Date: 20101020
  Transmission Date: 20110411
  Serious: Yes (Death, Life-Threatening, Hospitalization, Other)
  Sender: FDA-Public Use
  Company Number: APP201000867

PATIENT
  Age: 26 Year
  Sex: Male
  Weight: 64 kg

DRUGS (32)
  1. HEPARIN SODIUM INJECTION [Suspect]
     Indication: AORTOGRAM
     Dosage: 2500 UNITS IN 500 CC SALINE BAG, INTRAVENOUS DRIP
     Route: 041
     Dates: start: 20071206, end: 20071206
  2. HEPARIN SODIUM [Suspect]
     Indication: ENDOCARDITIS
     Dosage: INTRAVENOUS DRIP
     Route: 041
     Dates: start: 20071101, end: 20071101
  3. HEPARIN SODIUM [Suspect]
     Indication: ANTICOAGULANT THERAPY
     Dosage: 5000 USP UNITS, 8 HR, SUBCUTANEOUS
     Route: 058
     Dates: start: 20071203, end: 20071206
  4. HEPARIN SODIUM [Suspect]
     Indication: AORTIC SURGERY
     Dosage: 5000 USP UNITS, 8 HR, SUBCUTANEOUS
     Route: 058
     Dates: start: 20071203, end: 20071206
  5. HEPARIN SODIUM [Suspect]
     Indication: AORTIC VALVE REPLACEMENT
     Dosage: 5000 USP UNITS, 8 HR, SUBCUTANEOUS
     Route: 058
     Dates: start: 20071203, end: 20071206
  6. HEPARIN SODIUM [Suspect]
     Indication: ARTERIAL CATHETERISATION
     Dosage: 5000 USP UNITS, 8 HR, SUBCUTANEOUS
     Route: 058
     Dates: start: 20071203, end: 20071206
  7. HEPARIN SODIUM [Suspect]
     Indication: CORONARY ARTERY BYPASS
     Dosage: 5000 USP UNITS, 8 HR, SUBCUTANEOUS
     Route: 058
     Dates: start: 20071203, end: 20071206
  8. HEPARIN SODIUM [Suspect]
     Indication: ENDOCARDITIS
     Dosage: 5000 USP UNITS, 8 HR, SUBCUTANEOUS
     Route: 058
     Dates: start: 20071203, end: 20071206
  9. HEPARIN SODIUM [Suspect]
     Indication: MITRAL VALVE REPAIR
     Dosage: 5000 USP UNITS, 8 HR, SUBCUTANEOUS
     Route: 058
     Dates: start: 20071203, end: 20071206
  10. HEPARIN SODIUM [Suspect]
     Indication: THROMBOSIS PROPHYLAXIS
     Dosage: 5000 USP UNITS, 8 HR, SUBCUTANEOUS
     Route: 058
     Dates: start: 20071203, end: 20071206
  11. HEPARIN SODIUM [Suspect]
     Dosage: INTRAVENOUS
     Route: 042
     Dates: start: 20071203, end: 20071206
  12. ADVIL [Concomitant]
  13. CEFTRIAXONE [Concomitant]
  14. DOCUSATE SODIUM (DOCUSATE SODIUM) [Concomitant]
  15. MAGNESIUM SULFATE [Concomitant]
  16. PANTOPRAZOLE SODIUM [Concomitant]
  17. POTASSIUM CHLORIDE [Concomitant]
  18. SALINE [Concomitant]
  19. VANCOMYCIN [Concomitant]
  20. ASPIRIN [Concomitant]
  21. CHLORHEXIDINE (CHLORHEXIDINE) [Concomitant]
  22. FAMOTIDINE [Concomitant]
  23. IBUPROFEN [Concomitant]
  24. ATVAN (LORAZEPAM) [Concomitant]
  25. FACTOR VII (FACTOR VII (PROCONVERTIN)) [Concomitant]
  26. LASIX [Concomitant]
  27. ACETAMINOPHEN [Concomitant]
  28. MAALOX PLUS [Concomitant]
  29. BISACODYL (BISACODYL) [Concomitant]
  30. DIPHENHYDRAMINE HCL [Concomitant]
  31. ONDANSETRON [Concomitant]
  32. FENTANYL-100 [Concomitant]

REACTIONS (19)
  - ABSCESS [None]
  - ACUTE LUNG INJURY [None]
  - CARDIAC ARREST [None]
  - CONVULSION [None]
  - DISSEMINATED INTRAVASCULAR COAGULATION [None]
  - EMBOLISM ARTERIAL [None]
  - ENDOCARDITIS BACTERIAL [None]
  - HAEMODIALYSIS [None]
  - HEPARIN-INDUCED THROMBOCYTOPENIA [None]
  - HYPERGLYCAEMIA [None]
  - ISCHAEMIC HEPATITIS [None]
  - LUNG INFILTRATION [None]
  - PNEUMOTHORAX [None]
  - POST PROCEDURAL COMPLICATION [None]
  - PROCEDURAL HYPOTENSION [None]
  - PYREXIA [None]
  - RENAL FAILURE [None]
  - SUBACUTE ENDOCARDITIS [None]
  - URINARY TRACT INFECTION FUNGAL [None]
